FAERS Safety Report 9470881 (Version 1)
Quarter: 2013Q3

REPORT INFORMATION
  Report Type: Spontaneous
  Country: US (occurrence: None)
  Receive Date: 20130820
  Receipt Date: 20130820
  Transmission Date: 20140515
  Serious: No
  Sender: FDA-Public Use
  Company Number: None

PATIENT
  Age: 62 Year
  Sex: Female
  Weight: 77.11 kg

DRUGS (11)
  1. COSMETICS [Suspect]
     Indication: ALOPECIA
     Dosage: QUANTITY:  ONE APPLICATION EACH NIGHT?FREQUENCY:  ONCE AT BEDTIME DAILY?HOW:  ON THE SKIN?
     Route: 061
     Dates: start: 20120928, end: 201305
  2. LEVOTHYROXIN [Concomitant]
  3. SIMVASTATIN [Concomitant]
  4. NORVASC [Concomitant]
  5. FUROSEMIDE [Concomitant]
  6. CARAFATE [Concomitant]
  7. ALLEGRA [Concomitant]
  8. B12 [Concomitant]
  9. CALCIUM [Concomitant]
  10. BIOTIN [Concomitant]
  11. FISH OIL [Concomitant]

REACTIONS (2)
  - Madarosis [None]
  - Facial pain [None]
